FAERS Safety Report 6608911 (Version 2)
Quarter: 2020Q3

REPORT INFORMATION
  Report Type: Report from Study
  Country: AR (occurrence: AR)
  Receive Date: 20080408
  Receipt Date: 20080508
  Transmission Date: 20201104
  Serious: Yes (Hospitalization)
  Sender: FDA-Public Use
  Company Number: AR-JNJFOC-20080400005

PATIENT
  Age: 45 Year
  Sex: Male
  Weight: 74 kg

DRUGS (10)
  1. ETRAVIRINE [Suspect]
     Active Substance: ETRAVIRINE
     Route: 048
  2. PREZISTA [Suspect]
     Active Substance: DARUNAVIR ETHANOLATE
     Route: 048
  3. RITONAVIR. [Suspect]
     Active Substance: RITONAVIR
     Indication: HIV INFECTION
     Route: 048
  4. COMBIVIR [Concomitant]
     Active Substance: LAMIVUDINE\ZIDOVUDINE
     Indication: HIV INFECTION
     Route: 048
  5. CLONAZEPAM. [Concomitant]
     Active Substance: CLONAZEPAM
  6. ETRAVIRINE [Suspect]
     Active Substance: ETRAVIRINE
     Indication: HIV INFECTION
     Route: 048
  7. ENFUVIRTIDE [Concomitant]
     Indication: HIV INFECTION
     Route: 058
  8. PREZISTA [Suspect]
     Active Substance: DARUNAVIR ETHANOLATE
     Indication: HIV INFECTION
     Route: 048
  9. TENOFOVIR [Concomitant]
     Active Substance: TENOFOVIR
     Indication: HIV INFECTION
     Route: 048
  10. VALPROIC ACID. [Concomitant]
     Active Substance: VALPROIC ACID

REACTIONS (1)
  - Depression [Unknown]

NARRATIVE: CASE EVENT DATE: 20080324
